FAERS Safety Report 8500171-1 (Version None)
Quarter: 2012Q3

REPORT INFORMATION
  Report Type: 
  Country: None (occurrence: None)
  Receive Date: 20120710
  Receipt Date: 20120629
  Transmission Date: 20120928
  Serious: Yes (Other)
  Sender: FDA-Public Use
  Company Number: US-PFIZER INC-2012071874

PATIENT
  Sex: Female
  Weight: 70.29 kg

DRUGS (5)
  1. SUBOXONE [Suspect]
     Indication: DRUG ABUSE
     Dosage: UNK
  2. OXYCONTIN [Suspect]
     Indication: COMPLEX REGIONAL PAIN SYNDROME
     Dosage: 240 MG (3 TABLETS OF 80MG)  Q12H
     Route: 048
     Dates: end: 20120102
  3. MS CONTIN [Suspect]
     Indication: DRUG ABUSE
     Dosage: UNK
     Route: 065
  4. OXYCONTIN [Suspect]
     Indication: RESTRICTIVE PULMONARY DISEASE
     Dosage: 240 MG (3 TABLETS OF 80MG)  Q12H
     Dates: end: 20120102
  5. OXYCONTIN [Suspect]
     Indication: CERVICOBRACHIAL SYNDROME

REACTIONS (10)
  - DIARRHOEA [None]
  - DRUG WITHDRAWAL SYNDROME [None]
  - ABNORMAL BEHAVIOUR [None]
  - TACHYCARDIA [None]
  - PAIN [None]
  - PAIN IN EXTREMITY [None]
  - INTENTIONAL DRUG MISUSE [None]
  - NEGATIVE THOUGHTS [None]
  - PRURITUS [None]
  - DRUG ABUSE [None]
